FAERS Safety Report 18319774 (Version 3)
Quarter: 2020Q4

REPORT INFORMATION
  Report Type: Spontaneous
  Country: CA (occurrence: CA)
  Receive Date: 20200928
  Receipt Date: 20201016
  Transmission Date: 20210113
  Serious: Yes (Other)
  Sender: FDA-Public Use
  Company Number: CA-CELLTRION INC.-2019CA020402

PATIENT

DRUGS (6)
  1. INFLECTRA [Suspect]
     Active Substance: INFLIXIMAB-DYYB
     Dosage: 400 MG (5 MG/KG) EVERY 4-6 WEEKS
     Route: 042
     Dates: start: 20200331
  2. INFLECTRA [Suspect]
     Active Substance: INFLIXIMAB-DYYB
     Dosage: 200 MG, (EVERY 0 ,2, 6 WEEKS, THEN EVERY 6 WEEKS)
     Route: 042
     Dates: start: 20200302
  3. INFLECTRA [Suspect]
     Active Substance: INFLIXIMAB-DYYB
     Indication: RHEUMATOID ARTHRITIS
     Dosage: 200 MG, (EVERY 0,2,6 WEEKS, THEN EVERY 6 WEEKS)
     Route: 042
     Dates: start: 20190211, end: 20200302
  4. INFLECTRA [Suspect]
     Active Substance: INFLIXIMAB-DYYB
     Dosage: 200 MG, (EVERY 0 ,2, 6 WEEKS, THEN EVERY 6 WEEKS)
     Route: 042
     Dates: start: 20190225
  5. INFLECTRA [Suspect]
     Active Substance: INFLIXIMAB-DYYB
     Dosage: 400 MG (5 MG/KG) EVERY 4-6 WEEKS
     Route: 042
     Dates: start: 20200901
  6. INFLECTRA [Suspect]
     Active Substance: INFLIXIMAB-DYYB
     Dosage: 400 MG (5 MG/KG) EVERY 4-6 WEEKS
     Route: 042
     Dates: start: 20200716

REACTIONS (9)
  - Fall [Unknown]
  - Weight increased [Unknown]
  - Jaw fracture [Unknown]
  - Trunk injury [Unknown]
  - Weight decreased [Unknown]
  - Product use issue [Unknown]
  - Syncope [Unknown]
  - Off label use [Unknown]
  - Wrist fracture [Unknown]
